FAERS Safety Report 7843961-0 (Version None)
Quarter: 2011Q4

REPORT INFORMATION
  Report Type: 
  Country: None (occurrence: None)
  Receive Date: 20111025
  Receipt Date: 20110916
  Transmission Date: 20120403
  Serious: Yes (Other)
  Sender: FDA-Public Use
  Company Number: PHHY2011BR93676

PATIENT
  Age: 62 Year
  Sex: Female

DRUGS (7)
  1. ENALAPRIL MALEATE [Suspect]
     Indication: VENTRICULAR ARRHYTHMIA
     Dosage: 20 MG/ DAY
     Route: 048
     Dates: start: 20020101
  2. CARVEDILOL [Concomitant]
     Dosage: 50 MG, UNK
  3. CARVEDILOL [Concomitant]
     Dosage: 6.25 MG, UNK
  4. SPIRONOLACTONE [Concomitant]
  5. CAPTOPRIL [Concomitant]
     Dosage: 37.5 MG, UNK
  6. CANDESARTAN CILEXETIL [Concomitant]
     Dosage: 16 MG, UNK
  7. ALISKIREN [Concomitant]
     Dosage: 150 MG, UNK

REACTIONS (9)
  - COUGH [None]
  - FATIGUE [None]
  - HYPOTENSION [None]
  - ANGINA PECTORIS [None]
  - CARDIAC FAILURE [None]
  - ATRIAL FIBRILLATION [None]
  - DYSPNOEA [None]
  - VENTRICULAR TACHYCARDIA [None]
  - BRAIN NATRIURETIC PEPTIDE INCREASED [None]
